FAERS Safety Report 6440931-4 (Version None)
Quarter: 2009Q4

REPORT INFORMATION
  Report Type: 
  Country: None (occurrence: None)
  Receive Date: 20091116
  Receipt Date: 20091109
  Transmission Date: 20100525
  Serious: Yes (Death, Other)
  Sender: FDA-Public Use
  Company Number: US-ELI_LILLY_AND_COMPANY-US200911002411

PATIENT
  Sex: Male
  Weight: 83.4 kg

DRUGS (23)
  1. GEMCITABINE HCL [Suspect]
     Indication: MANTLE CELL LYMPHOMA
     Dosage: 1000 MG/M2, UNK
     Dates: start: 20080701, end: 20080701
  2. GEMCITABINE HCL [Suspect]
     Dosage: 1 G/M2, DAYS 1 AND 8 EVERY 21 DAYS
     Dates: start: 20090623
  3. RITUXAN [Concomitant]
     Indication: MANTLE CELL LYMPHOMA
     Dates: start: 20080901, end: 20081201
  4. RITUXAN [Concomitant]
     Dosage: 375 MG/M2, WEEKLY (1/W) X3
     Dates: start: 20090623
  5. INVESTIGATIONAL DRUG [Concomitant]
     Indication: MANTLE CELL LYMPHOMA REFRACTORY
     Dosage: 10 MG, DAILY (1/D)
     Route: 048
     Dates: start: 20090520, end: 20090623
  6. BENDAMUSTINE HYDROCHLORIDE [Concomitant]
     Indication: MANTLE CELL LYMPHOMA
     Dates: start: 20080901, end: 20081201
  7. DECADRON [Concomitant]
     Dosage: UNK, UNK
     Dates: start: 20080701, end: 20080701
  8. PREDNISOLONE [Concomitant]
     Indication: MANTLE CELL LYMPHOMA REFRACTORY
     Dates: start: 20090623
  9. OXYCODONE [Concomitant]
  10. VITAMIN B-12 [Concomitant]
  11. MULTI-VITAMIN [Concomitant]
  12. ATENOLOL [Concomitant]
  13. LOSARTAN POTASSIUM [Concomitant]
  14. NEURONTIN [Concomitant]
  15. NEXIUM [Concomitant]
  16. ASPIRIN [Concomitant]
  17. NORTRIPTYLINE [Concomitant]
  18. VALTREX [Concomitant]
  19. HYDROCHLOROTHIAZIDE [Concomitant]
  20. ZOLOFT [Concomitant]
  21. CORTISONE [Concomitant]
  22. TEGRETOL [Concomitant]
  23. OXYGEN [Concomitant]

REACTIONS (13)
  - ANAEMIA [None]
  - CONVULSION [None]
  - HAEMATURIA [None]
  - INFECTION [None]
  - LEUKOPENIA [None]
  - MALIGNANT NEOPLASM PROGRESSION [None]
  - OEDEMA [None]
  - OFF LABEL USE [None]
  - PAIN [None]
  - PYREXIA [None]
  - TACHYCARDIA [None]
  - THERAPEUTIC AGENT TOXICITY [None]
  - THROMBOCYTOPENIA [None]
